FAERS Safety Report 25537027 (Version 1)
Quarter: 2025Q3

REPORT INFORMATION
  Report Type: Report from Study
  Country: CO (occurrence: CO)
  Receive Date: 20250710
  Receipt Date: 20250710
  Transmission Date: 20251020
  Serious: Yes (Death, Hospitalization, Other)
  Sender: ASTELLAS
  Company Number: CO-ASTELLAS-2022US045865

PATIENT
  Age: 1 Year
  Sex: Female
  Weight: 8 kg

DRUGS (1)
  1. TACROLIMUS [Suspect]
     Active Substance: TACROLIMUS
     Indication: Liver transplant
     Dosage: 1 MG, EVERY 12 HOURS (1 MG AM AND 1 MG PM)
     Route: 048
     Dates: start: 20211126

REACTIONS (3)
  - Haematemesis [Fatal]
  - Pneumonia [Fatal]
  - Influenza [Fatal]
